FAERS Safety Report 6289179-7 (Version None)
Quarter: 2009Q3

REPORT INFORMATION
  Report Type: 
  Country: None (occurrence: None)
  Receive Date: 20090728
  Receipt Date: 20090713
  Transmission Date: 20100115
  Serious: Yes (Other)
  Sender: FDA-Public Use
  Company Number: VAL_00300_2009

PATIENT

DRUGS (3)
  1. CARBAMAZEPINE [Suspect]
     Indication: EPILEPSY
     Dosage: 800 MG, FREQUENCY UNSPECIFIED
  2. QUETIAPINE FUMARATE [Suspect]
     Indication: ABNORMAL BEHAVIOUR
     Dosage: 700 MG, FREQUENCY UNSPECIFIED
  3. QUETIAPINE FUMARATE [Suspect]
     Indication: ALCOHOL INDUCED PERSISTING DEMENTIA
     Dosage: 700 MG, FREQUENCY UNSPECIFIED

REACTIONS (4)
  - ABNORMAL BEHAVIOUR [None]
  - DRUG CLEARANCE INCREASED [None]
  - DRUG INTERACTION [None]
  - ENZYME INDUCTION [None]
